FAERS Safety Report 21994607 (Version 2)
Quarter: 2023Q4

REPORT INFORMATION
  Report Type: Spontaneous
  Country: GB (occurrence: GB)
  Receive Date: 20230215
  Receipt Date: 20231020
  Transmission Date: 20240110
  Serious: Yes (Other)
  Sender: FDA-Public Use
  Company Number: GB-VERTEX PHARMACEUTICALS-2023-002109

PATIENT
  Sex: Male

DRUGS (6)
  1. ELEXACAFTOR\IVACAFTOR\TEZACAFTOR [Suspect]
     Active Substance: ELEXACAFTOR\IVACAFTOR\TEZACAFTOR
     Indication: Cystic fibrosis
     Dosage: (75 MG IVA/ 50 MG TEZA/100 MG ELEXA) TWO TABLETS IN THE MORNING
     Route: 048
     Dates: start: 2020
  2. ELEXACAFTOR\IVACAFTOR\TEZACAFTOR [Suspect]
     Active Substance: ELEXACAFTOR\IVACAFTOR\TEZACAFTOR
     Dosage: (75 MG IVA/ 50 MG TEZA/100 MG ELEXA) 2 A DAY ON THE ALLOCATED MONTH, THE REMAINING 1 EVERY DAY FOR O
     Route: 048
  3. KALYDECO [Suspect]
     Active Substance: IVACAFTOR
     Indication: Cystic fibrosis
     Dosage: UNKNOWN DOSE
     Route: 048
     Dates: start: 2020
  4. SILDENAFIL [Concomitant]
     Active Substance: SILDENAFIL
  5. PULMOZYME [Concomitant]
     Active Substance: DORNASE ALFA
     Dosage: EVERY OTHER DAY
  6. AZTREONAM [Concomitant]
     Active Substance: AZTREONAM

REACTIONS (2)
  - Deafness unilateral [Not Recovered/Not Resolved]
  - Tinnitus [Not Recovered/Not Resolved]

NARRATIVE: CASE EVENT DATE: 20230101
